FAERS Safety Report 18476899 (Version 4)
Quarter: 2020Q4

REPORT INFORMATION
  Report Type: Report from Study
  Country: BR (occurrence: BR)
  Receive Date: 20201107
  Receipt Date: 20201130
  Transmission Date: 20210114
  Serious: Yes (Other)
  Sender: FDA-Public Use
  Company Number: NVSC2020BR290901

PATIENT
  Age: 59 Year
  Sex: Female

DRUGS (7)
  1. METHOTREXATE. [Suspect]
     Active Substance: METHOTREXATE
     Indication: PRODUCT USED FOR UNKNOWN INDICATION
     Dosage: UNK
     Route: 065
  2. NIMESULIDE [Suspect]
     Active Substance: NIMESULIDE
     Indication: PRODUCT USED FOR UNKNOWN INDICATION
     Dosage: UNK
     Route: 065
  3. PREDSIM [Concomitant]
     Active Substance: PREDNISOLONE
     Indication: PRODUCT USED FOR UNKNOWN INDICATION
     Dosage: UNK
     Route: 065
  4. COSENTYX [Suspect]
     Active Substance: SECUKINUMAB
     Indication: PSORIASIS
     Dosage: UNK (2 PENS EVERY APPLICATION)
     Route: 065
     Dates: start: 20201016
  5. DAPSONE. [Concomitant]
     Active Substance: DAPSONE
     Indication: PRODUCT USED FOR UNKNOWN INDICATION
     Dosage: UNK
     Route: 065
  6. COSENTYX [Suspect]
     Active Substance: SECUKINUMAB
     Dosage: UNK
     Route: 065
  7. COSENTYX [Suspect]
     Active Substance: SECUKINUMAB
     Dosage: 300 MG, UNKNOWN
     Route: 065
     Dates: start: 20201106

REACTIONS (31)
  - Cough [Recovering/Resolving]
  - Drug ineffective [Not Recovered/Not Resolved]
  - Nodule [Recovering/Resolving]
  - Scratch [Not Recovered/Not Resolved]
  - Device leakage [Unknown]
  - Throat irritation [Not Recovered/Not Resolved]
  - Catarrh [Not Recovered/Not Resolved]
  - Back injury [Not Recovered/Not Resolved]
  - Incorrect dose administered [Unknown]
  - Rhinitis [Recovered/Resolved]
  - Blister [Unknown]
  - Pruritus [Not Recovered/Not Resolved]
  - Influenza [Not Recovered/Not Resolved]
  - Malaise [Recovered/Resolved]
  - Skin injury [Recovering/Resolving]
  - Skin mass [Not Recovered/Not Resolved]
  - Immunodeficiency [Unknown]
  - Pyrexia [Recovered/Resolved]
  - Candida infection [Unknown]
  - Erythema [Unknown]
  - General physical health deterioration [Unknown]
  - Hypersensitivity [Recovering/Resolving]
  - Sneezing [Recovering/Resolving]
  - Fatigue [Not Recovered/Not Resolved]
  - Skin haemorrhage [Unknown]
  - Oropharyngeal pain [Recovered/Resolved]
  - Discomfort [Not Recovered/Not Resolved]
  - Wound [Not Recovered/Not Resolved]
  - Urticaria [Recovering/Resolving]
  - Headache [Not Recovered/Not Resolved]
  - Psoriasis [Unknown]

NARRATIVE: CASE EVENT DATE: 20201016
